FAERS Safety Report 4598879-6 (Version None)
Quarter: 2005Q1

REPORT INFORMATION
  Report Type: 
  Country: None (occurrence: None)
  Receive Date: 20050301
  Receipt Date: 20050213
  Transmission Date: 20050727
  Serious: Yes (Hospitalization)
  Sender: FDA-Public Use
  Company Number: 2005-BP-02325BP

PATIENT
  Age: 70 Year
  Sex: Male

DRUGS (8)
  1. FLOMAX [Suspect]
     Indication: BENIGN PROSTATIC HYPERPLASIA
     Dosage: SEE IMAGE
     Route: 048
     Dates: start: 20000101, end: 20040101
  2. FLOMAX [Suspect]
     Indication: BENIGN PROSTATIC HYPERPLASIA
     Dosage: SEE IMAGE
     Route: 048
     Dates: start: 20040101
  3. VITAMIN E [Concomitant]
  4. VITAMIN C (ASCORBIC ACID) [Concomitant]
  5. MTV (MTV) [Concomitant]
  6. MSM (METHYLSULFONYLMETHANE) [Concomitant]
  7. LYCOPENE (LYCOPENE) [Concomitant]
  8. SAW PALMETTO (SERENOA REPENS) [Concomitant]

REACTIONS (5)
  - BLOOD PRESSURE INCREASED [None]
  - FATIGUE [None]
  - TREATMENT NONCOMPLIANCE [None]
  - UNDERDOSE [None]
  - URINARY RETENTION [None]
